FAERS Safety Report 24533240 (Version 1)
Quarter: 2024Q4

REPORT INFORMATION
  Report Type: Spontaneous
  Country: DE (occurrence: DE)
  Receive Date: 20241022
  Receipt Date: 20241022
  Transmission Date: 20250115
  Serious: Yes (Life-Threatening, Other)
  Sender: B BRAUN
  Company Number: DE-B.Braun Medical Inc.-2163535

PATIENT
  Age: 86 Year
  Sex: Female
  Weight: 56 kg

DRUGS (55)
  1. LIDOCAINE HYDROCHLORIDE [Suspect]
     Active Substance: LIDOCAINE HYDROCHLORIDE
     Indication: Local anaesthesia
  2. ESTRIOL [Suspect]
     Active Substance: ESTRIOL
  3. OMEPRAZOLE [Concomitant]
     Active Substance: OMEPRAZOLE
  4. COTRIM [Concomitant]
     Active Substance: SULFAMETHOXAZOLE\TRIMETHOPRIM
  5. SULFAMETHOXAZOLE [Concomitant]
     Active Substance: SULFAMETHOXAZOLE
  6. MOLSIDOMINE [Concomitant]
     Active Substance: MOLSIDOMINE
  7. POTASSIUM CHLORIDE [Concomitant]
     Active Substance: POTASSIUM CHLORIDE
  8. PREDNISONE [Concomitant]
     Active Substance: PREDNISONE
  9. FENTANYL [Concomitant]
     Active Substance: FENTANYL
  10. SODIUM CHLORIDE [Concomitant]
     Active Substance: SODIUM CHLORIDE
  11. CALCIUM CHLORIDE [Concomitant]
     Active Substance: CALCIUM CHLORIDE
  12. OMEPRAZOLE [Concomitant]
     Active Substance: OMEPRAZOLE
  13. DALTEPARIN SODIUM [Concomitant]
     Active Substance: DALTEPARIN SODIUM
  14. CALCIUM GLUCONATE [Concomitant]
     Active Substance: CALCIUM GLUCONATE
  15. RINGERS SOLUTION [Concomitant]
     Active Substance: CALCIUM CHLORIDE\POTASSIUM CHLORIDE\SODIUM CHLORIDE
  16. OMEPRAZOLE MAGNESIUM [Concomitant]
     Active Substance: OMEPRAZOLE MAGNESIUM
  17. PREDNISOLONE [Concomitant]
     Active Substance: PREDNISOLONE
  18. DEXTROSE [Concomitant]
     Active Substance: DEXTROSE MONOHYDRATE
  19. CALCIUM [Concomitant]
     Active Substance: CALCIUM
  20. CALCIUM [Concomitant]
     Active Substance: CALCIUM
  21. POTASSIUM CHLORIDE [Concomitant]
     Active Substance: POTASSIUM CHLORIDE
  22. OMEPRAZOLE MAGNESIUM [Concomitant]
     Active Substance: OMEPRAZOLE MAGNESIUM
  23. MOLSIDOMINE [Concomitant]
     Active Substance: MOLSIDOMINE
  24. FENTANYL [Concomitant]
     Active Substance: FENTANYL
  25. CALCIUM CHLORIDE [Concomitant]
     Active Substance: CALCIUM CHLORIDE
  26. GLYBURIDE [Concomitant]
     Active Substance: GLYBURIDE
  27. VIOXX [Suspect]
     Active Substance: ROFECOXIB
  28. CLONIDINE [Suspect]
     Active Substance: CLONIDINE
  29. NORTRIPTYLINE [Suspect]
     Active Substance: NORTRIPTYLINE
  30. UNSPECIFIED INGREDIENT [Suspect]
     Active Substance: UNSPECIFIED INGREDIENT
  31. PREDNISONE [Suspect]
     Active Substance: PREDNISONE
  32. ASPIRIN [Suspect]
     Active Substance: ASPIRIN
  33. ISOSORBIDE MONONITRATE [Suspect]
     Active Substance: ISOSORBIDE MONONITRATE
  34. OMEPRAZOLE [Suspect]
     Active Substance: OMEPRAZOLE
  35. CLEMASTINE FUMARATE [Suspect]
     Active Substance: CLEMASTINE FUMARATE
  36. GLYBURIDE [Suspect]
     Active Substance: GLYBURIDE
  37. MOLSIDOMINE [Suspect]
     Active Substance: MOLSIDOMINE
  38. OMEPRAZOLE MAGNESIUM [Suspect]
     Active Substance: OMEPRAZOLE MAGNESIUM
  39. XYLOCAINE [Suspect]
     Active Substance: LIDOCAINE HYDROCHLORIDE
  40. ASPIRIN [Suspect]
     Active Substance: ASPIRIN
  41. TORSEMIDE [Suspect]
     Active Substance: TORSEMIDE
  42. DIAZEPAM [Suspect]
     Active Substance: DIAZEPAM
  43. FENTANYL [Suspect]
     Active Substance: FENTANYL
  44. LORMETAZEPAM [Suspect]
     Active Substance: LORMETAZEPAM
  45. PREDNISOLONE [Suspect]
     Active Substance: PREDNISOLONE
  46. PLAVIX [Suspect]
     Active Substance: CLOPIDOGREL BISULFATE
  47. CLONIDINE [Suspect]
     Active Substance: CLONIDINE
  48. NOREPINEPHRINE\NOREPINEPHRINE BITARTRATE [Suspect]
     Active Substance: NOREPINEPHRINE\NOREPINEPHRINE BITARTRATE
  49. NOREPINEPHRINE [Suspect]
     Active Substance: NOREPINEPHRINE\NOREPINEPHRINE BITARTRATE
  50. ASPIRIN [Suspect]
     Active Substance: ASPIRIN
  51. FRAGMIN [Suspect]
     Active Substance: DALTEPARIN SODIUM
  52. LORMETAZEPAM [Suspect]
     Active Substance: LORMETAZEPAM
  53. TORSEMIDE [Suspect]
     Active Substance: TORSEMIDE
  54. INSULIN NOS [Suspect]
     Active Substance: INSULIN NOS
  55. GLYBURIDE [Suspect]
     Active Substance: GLYBURIDE

REACTIONS (7)
  - Erythema [Recovered/Resolved]
  - Conjunctivitis [Recovered/Resolved]
  - Genital erosion [Recovered/Resolved]
  - Mouth ulceration [Recovered/Resolved]
  - Mucosal erosion [Recovered/Resolved]
  - Blister [Recovered/Resolved]
  - Toxic epidermal necrolysis [Recovered/Resolved]
